FAERS Safety Report 7364515-9 (Version None)
Quarter: 2011Q1

REPORT INFORMATION
  Report Type: 
  Country: None (occurrence: None)
  Receive Date: 20110321
  Receipt Date: 20110310
  Transmission Date: 20110831
  Serious: Yes (Hospitalization)
  Sender: FDA-Public Use
  Company Number: US-MERCK-1103USA01602

PATIENT
  Age: 68 Year
  Sex: Female

DRUGS (3)
  1. FOSAMAX PLUS D [Suspect]
     Route: 048
     Dates: end: 20100831
  2. CELEBREX [Concomitant]
     Route: 065
  3. FOSAMAX [Suspect]
     Indication: OSTEOPOROSIS
     Route: 048
     Dates: start: 20030101

REACTIONS (4)
  - MASTICATION DISORDER [None]
  - JAW DISORDER [None]
  - ORAL DISORDER [None]
  - PAIN IN JAW [None]
